FAERS Safety Report 6166833-9 (Version None)
Quarter: 2009Q2

REPORT INFORMATION
  Report Type: 
  Country: None (occurrence: None)
  Receive Date: 20090423
  Receipt Date: 20090423
  Transmission Date: 20091009
  Serious: Yes (Other)
  Sender: FDA-Public Use
  Company Number: None

PATIENT
  Age: 54 Year
  Sex: Male
  Weight: 99.7913 kg

DRUGS (1)
  1. AMBIEN [Suspect]
     Indication: SOMNOLENCE
     Dosage: 10MG AS NEEDED PO
     Route: 048
     Dates: start: 20090101, end: 20090414

REACTIONS (3)
  - ABNORMAL SLEEP-RELATED EVENT [None]
  - MEMORY IMPAIRMENT [None]
  - SOMNAMBULISM [None]
